FAERS Safety Report 20149669 (Version 2)
Quarter: 2021Q4

REPORT INFORMATION
  Report Type: Spontaneous
  Country: US (occurrence: US)
  Receive Date: 20211206
  Receipt Date: 20211208
  Transmission Date: 20220303
  Serious: Yes (Hospitalization, Other)
  Sender: FDA-Public Use
  Company Number: US-SAKK-2021SA392096AA

PATIENT
  Age: 66 Year
  Sex: Male

DRUGS (7)
  1. GLIMEPIRIDE [Suspect]
     Active Substance: GLIMEPIRIDE
     Indication: Type 2 diabetes mellitus
     Dosage: 4 MG, BID
     Route: 048
  2. GLIMEPIRIDE [Suspect]
     Active Substance: GLIMEPIRIDE
     Dosage: 4 MG
  3. SEMAGLUTIDE [Concomitant]
     Active Substance: SEMAGLUTIDE
     Indication: Type 2 diabetes mellitus
     Dosage: 0.25 MG, QW
     Route: 065
  4. SEMAGLUTIDE [Concomitant]
     Active Substance: SEMAGLUTIDE
     Dosage: 0.25 MG Q WEEKLY
  5. AXITINIB [Concomitant]
     Active Substance: AXITINIB
     Indication: Renal cell carcinoma stage IV
     Route: 065
  6. AXITINIB [Concomitant]
     Active Substance: AXITINIB
     Indication: Renal cell carcinoma stage IV
  7. PEMBROLIZUMAB [Concomitant]
     Active Substance: PEMBROLIZUMAB
     Indication: Renal cell carcinoma stage IV

REACTIONS (10)
  - Encephalopathy [Recovered/Resolved]
  - Liver injury [Unknown]
  - Aspartate aminotransferase increased [Recovered/Resolved]
  - Alanine aminotransferase increased [Recovered/Resolved]
  - Toxicity to various agents [Recovered/Resolved]
  - Hypoglycaemia [Recovered/Resolved]
  - Pallor [Recovered/Resolved]
  - Hyperhidrosis [Recovered/Resolved]
  - Drug level increased [Recovered/Resolved]
  - Mental status changes [Unknown]
